FAERS Safety Report 4913394-5 (Version None)
Quarter: 2006Q1

REPORT INFORMATION
  Report Type: 
  Country: None (occurrence: None)
  Receive Date: 20060210
  Receipt Date: 20060131
  Transmission Date: 20060701
  Serious: Yes (Hospitalization)
  Sender: FDA-Public Use
  Company Number: A-CH2006-11553

PATIENT
  Age: 73 Year
  Sex: Female

DRUGS (4)
  1. BOSENTAN (BOSENTAN L. PHS TABLET 125 MG)  TABLET [Suspect]
     Indication: PULMONARY HYPERTENSION
     Dosage: 125 MG, BID, ORAL
     Route: 048
     Dates: start: 20031105, end: 20060124
  2. LOSARTAN POTASSIUM [Suspect]
     Indication: HYPERTENSION
  3. ACENOCOUMAROL (ACENOCOUMAROL) [Suspect]
     Indication: ANTICOAGULANT THERAPY
  4. RISEDRONIC ACID (RISEDRONIC ACID) [Suspect]
     Indication: OSTEOPOROSIS

REACTIONS (6)
  - ALANINE AMINOTRANSFERASE INCREASED [None]
  - ASPARTATE AMINOTRANSFERASE INCREASED [None]
  - BLOOD ALKALINE PHOSPHATASE INCREASED [None]
  - CHOLANGITIS [None]
  - JAUNDICE CHOLESTATIC [None]
  - WOUND [None]
